FAERS Safety Report 17101504 (Version 1)
Quarter: 2019Q4

REPORT INFORMATION
  Report Type: Spontaneous
  Country: US (occurrence: US)
  Receive Date: 20191202
  Receipt Date: 20191202
  Transmission Date: 20200122
  Serious: No
  Sender: FDA-Public Use
  Company Number: US-WALGREENS PREMIER BRANDS OF AMERICA INC.-2077387

PATIENT
  Age: 64 Year
  Sex: Female

DRUGS (3)
  1. FLUCONAZOLE. [Suspect]
     Active Substance: FLUCONAZOLE
  2. ANTIFUNGAL MICONAZOLE NITRATE [Suspect]
     Active Substance: MICONAZOLE NITRATE
     Indication: TINEA PEDIS
     Route: 003
     Dates: start: 20191107, end: 20191109
  3. NYSTATIN. [Suspect]
     Active Substance: NYSTATIN

REACTIONS (1)
  - Burns second degree [Recovering/Resolving]

NARRATIVE: CASE EVENT DATE: 20191109
